FAERS Safety Report 9304045 (Version 1)
Quarter: 2013Q2

REPORT INFORMATION
  Report Type: Spontaneous
  Country: US (occurrence: US)
  Receive Date: 20130522
  Receipt Date: 20130522
  Transmission Date: 20140414
  Serious: Yes (Hospitalization)
  Sender: FDA-Public Use
  Company Number: US-BAYER-2013-061185

PATIENT
  Age: 35 Year
  Sex: Female
  Weight: 63.95 kg

DRUGS (24)
  1. YAZ [Suspect]
     Dosage: UNK
  2. YASMIN [Suspect]
  3. BEYAZ [Suspect]
  4. GIANVI [Suspect]
  5. NAPROXEN [Concomitant]
     Dosage: 250 MG, UNK
  6. OXYCODONE [Concomitant]
     Dosage: 5/325
  7. SULFAMETHOXAZOLE [Concomitant]
  8. TRIMETHOPRIM [Concomitant]
  9. ACETAMINOPHEN [Concomitant]
  10. ASACOL [Concomitant]
     Dosage: 400 MG, UNK
  11. AMBIEN [Concomitant]
  12. XANAX [Concomitant]
     Dosage: 1 MG, UNK
  13. SODIUM CHLORIDE [Concomitant]
     Dosage: 0.9%, 1000ML AT 1000ML/HOUR THEN 150 ML/HOUR.
     Route: 042
     Dates: start: 20120418
  14. PANTOPRAZOLE SODIUM [Concomitant]
     Dosage: 40 MG, QD
     Route: 042
     Dates: start: 20120418
  15. MORPHINE SULFATE [Concomitant]
     Indication: PAIN
     Dosage: 4 MG, PRN 4-6 HOURS
     Dates: start: 20120418
  16. METHYLPREDNISOLONE [Concomitant]
     Dosage: 60 MG, UNK
     Route: 042
     Dates: start: 20120418
  17. ONDANSETRON HYDROCHLORIDE [Concomitant]
     Indication: NAUSEA
     Dosage: 4 MG, PRN, 4-6 HOURS
     Route: 042
     Dates: start: 20120418
  18. POLYETHYLENE GLYCOL [Concomitant]
     Dosage: 4000 ML, UNK
     Dates: start: 20120419
  19. PROPOFOL [Concomitant]
     Dosage: UNK
     Dates: start: 20120420
  20. MESALAMINE [Concomitant]
     Dosage: 800 MG, TID
     Route: 048
     Dates: start: 20120420
  21. PREDNISONE [Concomitant]
     Dosage: 20 MG, UNK
     Route: 048
     Dates: start: 20120421
  22. DICYCLOMINE HCL [Concomitant]
     Dosage: 20 MG, TID
     Route: 048
     Dates: start: 20120421
  23. POTASSIUM PHOSPHATES [Concomitant]
     Dosage: 500 MG, TID
     Route: 048
     Dates: start: 20120421
  24. VANCOMYCIN [Concomitant]

REACTIONS (2)
  - Thrombophlebitis superficial [None]
  - Pulmonary embolism [None]
